FAERS Safety Report 18370194 (Version 1)
Quarter: 2020Q4

REPORT INFORMATION
  Report Type: Spontaneous
  Country: IT (occurrence: IT)
  Receive Date: 20201012
  Receipt Date: 20201012
  Transmission Date: 20210114
  Serious: Yes (Other)
  Sender: FDA-Public Use
  Company Number: IT-LUPIN PHARMACEUTICALS INC.-2020-07107

PATIENT
  Age: 55 Year
  Sex: Male
  Weight: 70 kg

DRUGS (10)
  1. AZITHROMYCIN ANHYDROUS. [Suspect]
     Active Substance: AZITHROMYCIN ANHYDROUS
     Indication: COVID-19
     Dosage: UNK (DISCONTINUED BECAUSE OF INTOLERANCE)
     Route: 065
     Dates: start: 202004, end: 202004
  2. NOREPINEPHRINE. [Concomitant]
     Active Substance: NOREPINEPHRINE
     Dosage: 0.19 MICROGRAM/KILOGRAM,ON DAY 2 (PATIENT REQUIRED HIGHER DOSES OF VASOPRESSORS AND LATER DOSE DECRE
     Route: 065
     Dates: start: 202004, end: 202004
  3. PROPOFOL. [Concomitant]
     Active Substance: PROPOFOL
     Indication: SEDATION
     Dosage: 4.57 MILLIGRAM/KILOGRAM EVERY HOUR ON DAY 1
     Route: 065
     Dates: start: 202004, end: 202004
  4. HYDROXYCHLOROQUINE [Suspect]
     Active Substance: HYDROXYCHLOROQUINE
     Indication: COVID-19
     Dosage: UNK (DISCONTINUED BECAUSE OF INTOLERANCE)
     Route: 065
     Dates: start: 202004, end: 202004
  5. PROPOFOL. [Concomitant]
     Active Substance: PROPOFOL
     Dosage: 7.49 MILLIGRAM/KILOGRAM EVERY HOUR ON DAY 3
     Route: 065
     Dates: start: 202004, end: 202004
  6. CEFTRIAXONE. [Suspect]
     Active Substance: CEFTRIAXONE
     Indication: COVID-19
     Dosage: UNK
     Route: 065
     Dates: start: 202004
  7. NOREPINEPHRINE. [Concomitant]
     Active Substance: NOREPINEPHRINE
     Indication: SUPPORTIVE CARE
     Dosage: 0.17 MICROGRAM/KILOGRAM, ON DAY 1
     Route: 065
     Dates: start: 202004, end: 202004
  8. DOBUTAMINE [Concomitant]
     Active Substance: DOBUTAMINE HYDROCHLORIDE
     Indication: SUPPORTIVE CARE
     Dosage: UNK (PATIENT REQUIRED HIGHER DOSES OF VASOPRESSORS)
     Route: 065
     Dates: start: 202004
  9. NOREPINEPHRINE. [Concomitant]
     Active Substance: NOREPINEPHRINE
     Dosage: UNK (DOSE DECREASED)
     Route: 065
     Dates: start: 202004
  10. PROPOFOL. [Concomitant]
     Active Substance: PROPOFOL
     Dosage: 7.17 MILLIGRAM/KILOGRAM EVERY HOUR ON DAY 2
     Route: 065
     Dates: start: 202004, end: 202004

REACTIONS (2)
  - Off label use [Unknown]
  - Drug intolerance [Unknown]

NARRATIVE: CASE EVENT DATE: 202004
